FAERS Safety Report 24112155 (Version 1)
Quarter: 2024Q3

REPORT INFORMATION
  Report Type: Report from Study
  Country: US (occurrence: US)
  Receive Date: 20240719
  Receipt Date: 20240719
  Transmission Date: 20241017
  Serious: Yes (Hospitalization, Other)
  Sender: TAKEDA
  Company Number: US-TAKEDA-2024TUS021564

PATIENT
  Sex: Female

DRUGS (4)
  1. TEDUGLUTIDE [Suspect]
     Active Substance: TEDUGLUTIDE
     Indication: Short-bowel syndrome
     Dosage: 3.57 MILLIGRAM, QD
     Route: 058
     Dates: start: 202402
  2. TEDUGLUTIDE [Suspect]
     Active Substance: TEDUGLUTIDE
     Indication: Short-bowel syndrome
     Dosage: 3.57 MILLIGRAM, QD
     Route: 058
     Dates: start: 202402
  3. TEDUGLUTIDE [Suspect]
     Active Substance: TEDUGLUTIDE
     Indication: Short-bowel syndrome
     Dosage: 3.57 MILLIGRAM, QD
     Route: 058
     Dates: start: 202402
  4. TEDUGLUTIDE [Suspect]
     Active Substance: TEDUGLUTIDE
     Indication: Short-bowel syndrome
     Dosage: 3.57 MILLIGRAM, QD
     Route: 058
     Dates: start: 202402

REACTIONS (4)
  - Pyoderma [Unknown]
  - Stoma complication [Unknown]
  - Nausea [Unknown]
  - Abdominal pain [Unknown]
